FAERS Safety Report 6113914-1 (Version None)
Quarter: 2009Q1

REPORT INFORMATION
  Report Type: 
  Country: None (occurrence: None)
  Receive Date: 20090312
  Receipt Date: 20080904
  Transmission Date: 20090719
  Serious: No
  Sender: FDA-Public Use
  Company Number: US-ABBOTT-08P-163-0474152-00

PATIENT
  Sex: Female
  Weight: 62.652 kg

DRUGS (5)
  1. LUPRON DEPOT [Suspect]
     Indication: ENDOMETRIOSIS
     Route: 030
     Dates: start: 20080811
  2. NORETHINDRONE ACETATE [Suspect]
     Indication: ENDOMETRIOSIS
     Route: 048
     Dates: start: 20080811
  3. CALCIUM [Concomitant]
     Indication: DRUG USE FOR UNKNOWN INDICATION
     Route: 048
  4. LEVOTHYROXINE SODIUM [Concomitant]
     Indication: BASEDOW'S DISEASE
     Route: 048
  5. CALCITRIOL [Concomitant]
     Indication: DRUG USE FOR UNKNOWN INDICATION
     Route: 048

REACTIONS (5)
  - HOT FLUSH [None]
  - NAUSEA [None]
  - NIGHT SWEATS [None]
  - VAGINAL HAEMORRHAGE [None]
  - VOMITING [None]
